FAERS Safety Report 25534673 (Version 1)
Quarter: 2025Q3

REPORT INFORMATION
  Report Type: Spontaneous
  Country: US (occurrence: US)
  Receive Date: 20250709
  Receipt Date: 20250709
  Transmission Date: 20251021
  Serious: Yes (Other)
  Sender: RECKITT BENCKISER
  Company Number: US-INDIVIOR US-INDV-166047-2025

PATIENT

DRUGS (2)
  1. SUBOXONE [Suspect]
     Active Substance: BUPRENORPHINE HYDROCHLORIDE\NALOXONE HYDROCHLORIDE
     Indication: Drug use disorder
     Dosage: 8 MILLIGRAM, TID
     Route: 064
     Dates: start: 2016, end: 2016
  2. REMERON [Suspect]
     Active Substance: MIRTAZAPINE
     Indication: Depression
     Route: 064
     Dates: start: 2016, end: 2016

REACTIONS (8)
  - Intracranial haemorrhage neonatal [Unknown]
  - Somnolence neonatal [Unknown]
  - Feeding tube user [Unknown]
  - Infantile colic [Recovered/Resolved]
  - Drug withdrawal syndrome neonatal [Recovered/Resolved]
  - Neonatal seizure [Unknown]
  - Decreased appetite [Unknown]
  - Foetal exposure during pregnancy [Recovered/Resolved]

NARRATIVE: CASE EVENT DATE: 20160101
